FAERS Safety Report 25594833 (Version 2)
Quarter: 2025Q3

REPORT INFORMATION
  Report Type: Spontaneous
  Country: EU (occurrence: EU)
  Receive Date: 20250723
  Receipt Date: 20250814
  Transmission Date: 20251021
  Serious: Yes (Other)
  Sender: SANDOZ
  Company Number: None

PATIENT
  Age: 28 Year
  Sex: Female

DRUGS (9)
  1. IMURAN [Suspect]
     Active Substance: AZATHIOPRINE
     Indication: Behcet^s syndrome
     Route: 065
  2. METHOTREXATE [Suspect]
     Active Substance: METHOTREXATE
     Indication: Arthritis
     Route: 065
  3. METHOTREXATE [Suspect]
     Active Substance: METHOTREXATE
     Indication: Product used for unknown indication
  4. METHOTREXATE [Suspect]
     Active Substance: METHOTREXATE
     Indication: Product used for unknown indication
  5. METHOTREXATE [Suspect]
     Active Substance: METHOTREXATE
     Indication: Behcet^s syndrome
     Route: 065
  6. ADALIMUMAB [Concomitant]
     Active Substance: ADALIMUMAB
     Indication: Product used for unknown indication
     Route: 065
  7. COLCHICINE [Concomitant]
     Active Substance: COLCHICINE
     Indication: Behcet^s syndrome
     Route: 065
  8. VITAMIN C [Concomitant]
     Active Substance: ASCORBIC ACID
     Indication: Vitamin supplementation
     Route: 065
  9. VITAMIN C [Concomitant]
     Active Substance: ASCORBIC ACID
     Indication: Behcet^s syndrome

REACTIONS (5)
  - Migraine [Unknown]
  - Neutropenia [Unknown]
  - Hepatitis [Unknown]
  - Diarrhoea [Unknown]
  - Drug intolerance [Unknown]
